FAERS Safety Report 6823907-4 (Version None)
Quarter: 2010Q3

REPORT INFORMATION
  Report Type: 
  Country: None (occurrence: None)
  Receive Date: 20100708
  Receipt Date: 20060926
  Transmission Date: 20110219
  Serious: No
  Sender: FDA-Public Use
  Company Number: US-PFIZER INC-2006117733

PATIENT
  Sex: Female
  Weight: 68.95 kg

DRUGS (9)
  1. CHANTIX [Suspect]
     Indication: SMOKING CESSATION THERAPY
     Dates: start: 20060925
  2. ABILIFY [Concomitant]
     Indication: SCHIZOPHRENIA, PARANOID TYPE
  3. TRAZODONE [Concomitant]
  4. CYMBALTA [Concomitant]
  5. ATIVAN [Concomitant]
  6. TRAMADOL [Concomitant]
     Indication: BACK DISORDER
  7. TRAMADOL [Concomitant]
     Indication: ARTHROPATHY
  8. CYCLOBENZAPRINE [Concomitant]
     Indication: BACK DISORDER
  9. CYCLOBENZAPRINE [Concomitant]
     Indication: ARTHROPATHY

REACTIONS (2)
  - HEADACHE [None]
  - NAUSEA [None]
